FAERS Safety Report 20854463 (Version 1)
Quarter: 2022Q2

REPORT INFORMATION
  Report Type: Spontaneous
  Country: US (occurrence: US)
  Receive Date: 20220520
  Receipt Date: 20220520
  Transmission Date: 20220721
  Serious: Yes (Other)
  Sender: FDA-Public Use
  Company Number: US-PFIZER INC-202200721513

PATIENT
  Age: 73 Year
  Sex: Male

DRUGS (10)
  1. LORAZEPAM [Suspect]
     Active Substance: LORAZEPAM
     Indication: Delirium
     Dosage: UNK
  2. LORAZEPAM [Suspect]
     Active Substance: LORAZEPAM
     Indication: Impulsive behaviour
  3. ARIPIPRAZOLE [Suspect]
     Active Substance: ARIPIPRAZOLE
     Indication: Delirium
     Dosage: UNK
  4. ARIPIPRAZOLE [Suspect]
     Active Substance: ARIPIPRAZOLE
     Indication: Impulsive behaviour
  5. QUETIAPINE [Suspect]
     Active Substance: QUETIAPINE
     Indication: Delirium
     Dosage: UNK
  6. QUETIAPINE [Suspect]
     Active Substance: QUETIAPINE
     Indication: Impulsive behaviour
  7. HALOPERIDOL [Suspect]
     Active Substance: HALOPERIDOL
     Indication: Delirium
     Dosage: UNK
  8. HALOPERIDOL [Suspect]
     Active Substance: HALOPERIDOL
     Indication: Impulsive behaviour
  9. BUSPIRONE [Suspect]
     Active Substance: BUSPIRONE HYDROCHLORIDE
     Indication: Delirium
     Dosage: UNK
  10. BUSPIRONE [Suspect]
     Active Substance: BUSPIRONE HYDROCHLORIDE
     Indication: Impulsive behaviour

REACTIONS (4)
  - Urinary retention [Unknown]
  - Agitation [Unknown]
  - Constipation [Unknown]
  - Off label use [Unknown]
